FAERS Safety Report 16025994 (Version 1)
Quarter: 2019Q1

REPORT INFORMATION
  Report Type: Spontaneous
  Country: US (occurrence: US)
  Receive Date: 20190302
  Receipt Date: 20190302
  Transmission Date: 20190418
  Serious: No
  Sender: FDA-Public Use
  Company Number: US-TEVA-2019-US-1008965

PATIENT
  Age: 5 Year
  Sex: Female

DRUGS (1)
  1. CEPHAFOS (CEFALEXIN) [Suspect]
     Active Substance: CEPHALEXIN
     Indication: INFECTION
     Dosage: 250 MG/5 ML

REACTIONS (1)
  - Product storage error [Unknown]
